APPROVED DRUG PRODUCT: CITALOPRAM HYDROBROMIDE
Active Ingredient: CITALOPRAM HYDROBROMIDE
Strength: EQ 20MG BASE
Dosage Form/Route: TABLET;ORAL
Application: A077044 | Product #002 | TE Code: AB
Applicant: CHARTWELL MOLECULAR HOLDINGS LLC
Approved: Nov 5, 2004 | RLD: No | RS: No | Type: RX